FAERS Safety Report 25056149 (Version 1)
Quarter: 2025Q1

REPORT INFORMATION
  Report Type: Spontaneous
  Country: US (occurrence: US)
  Receive Date: 20250309
  Receipt Date: 20250309
  Transmission Date: 20250408
  Serious: No
  Sender: ABBVIE
  Company Number: US-ABBVIE-6159627

PATIENT

DRUGS (3)
  1. HUMIRA [Suspect]
     Active Substance: ADALIMUMAB
     Indication: Crohn^s disease
     Route: 058
  2. HUMIRA [Suspect]
     Active Substance: ADALIMUMAB
     Indication: Colitis
  3. HUMIRA [Suspect]
     Active Substance: ADALIMUMAB
     Indication: Colon cancer

REACTIONS (3)
  - Off label use [Unknown]
  - Malaise [Unknown]
  - Product temperature excursion issue [Unknown]
